FAERS Safety Report 6434717-4 (Version None)
Quarter: 2009Q4

REPORT INFORMATION
  Report Type: 
  Country: None (occurrence: None)
  Receive Date: 20091110
  Receipt Date: 20091030
  Transmission Date: 20100525
  Serious: Yes (Hospitalization)
  Sender: FDA-Public Use
  Company Number: GXKR2009FR11974

PATIENT
  Sex: Male

DRUGS (6)
  1. AZITHROMYCIN (NGX) [Suspect]
     Dosage: 2.5 G, UNK
     Route: 065
  2. SULFAMETHOXAZOLE (NGX) [Suspect]
     Dosage: 4 G, UNK
     Route: 065
  3. PREDNISOLONE [Suspect]
     Dosage: 60 MG, UNK
     Route: 065
  4. BROMAZEPAM (NGX) [Suspect]
     Dosage: 120 MG, UNK
     Route: 065
  5. VORICONAZOLE [Suspect]
     Indication: ASPERGILLOSIS
     Dosage: UNK
     Route: 065
  6. VORICONAZOLE [Suspect]
     Dosage: 9.8 G, UNK
     Route: 065

REACTIONS (9)
  - AGITATION [None]
  - ALTERED STATE OF CONSCIOUSNESS [None]
  - CONFUSIONAL STATE [None]
  - ENDOTRACHEAL INTUBATION [None]
  - HEPATIC ENZYME INCREASED [None]
  - INTENTIONAL OVERDOSE [None]
  - MECHANICAL VENTILATION [None]
  - RENAL FAILURE ACUTE [None]
  - RHABDOMYOLYSIS [None]
